FAERS Safety Report 13595271 (Version 1)
Quarter: 2017Q2

REPORT INFORMATION
  Report Type: Spontaneous
  Country: PT (occurrence: PT)
  Receive Date: 20170531
  Receipt Date: 20170531
  Transmission Date: 20170830
  Serious: Yes (Other)
  Sender: FDA-Public Use
  Company Number: PT-ACCORD-051873

PATIENT
  Age: 71 Year
  Sex: Female

DRUGS (6)
  1. OLMESARTAN/OLMESARTAN MEDOXOMIL [Concomitant]
  2. SIMVASTATIN. [Concomitant]
     Active Substance: SIMVASTATIN
  3. AMLODIPINE [Suspect]
     Active Substance: AMLODIPINE BESYLATE
     Indication: PRODUCT USED FOR UNKNOWN INDICATION
  4. NEBIVOLOL/NEBIVOLOL HYDROCHLORIDE [Concomitant]
  5. OMEPRAZOLE. [Concomitant]
     Active Substance: OMEPRAZOLE
  6. DABIGATRAN/DABIGATRAN ETEXILATE [Concomitant]
     Route: 048

REACTIONS (1)
  - Chronic pigmented purpura [Recovered/Resolved]
